FAERS Safety Report 5367299-9 (Version None)
Quarter: 2007Q2

REPORT INFORMATION
  Report Type: 
  Country: None (occurrence: None)
  Receive Date: 20070622
  Receipt Date: 20060405
  Transmission Date: 20071010
  Serious: No
  Sender: FDA-Public Use
  Company Number: US-ASTRAZENECA-2006UW06063

PATIENT
  Age: 61 Year
  Sex: Male
  Weight: 74.8 kg

DRUGS (6)
  1. PULMICORT [Suspect]
     Indication: ASTHMA
     Route: 055
     Dates: start: 20050101
  2. PULMICORT [Suspect]
     Route: 055
  3. ALBUTEROL [Concomitant]
  4. NEXIUM [Concomitant]
     Route: 048
  5. TOPROL-XL [Concomitant]
     Route: 048
  6. LIBRAX [Concomitant]

REACTIONS (2)
  - ABDOMINAL DISTENSION [None]
  - FLATULENCE [None]
